FAERS Safety Report 25662553 (Version 1)
Quarter: 2025Q3

REPORT INFORMATION
  Report Type: Spontaneous
  Country: CN (occurrence: CN)
  Receive Date: 20250810
  Receipt Date: 20250810
  Transmission Date: 20251020
  Serious: Yes (Hospitalization, Other)
  Sender: BEIGENE
  Company Number: CN-BEIGENE-BGN-2025-012851

PATIENT
  Age: 78 Year
  Weight: 60 kg

DRUGS (12)
  1. TISLELIZUMAB [Suspect]
     Active Substance: TISLELIZUMAB
     Indication: Soft tissue sarcoma
     Dosage: 200 MILLIGRAM, Q3WK
     Route: 041
  2. TISLELIZUMAB [Suspect]
     Active Substance: TISLELIZUMAB
     Dosage: 200 MILLIGRAM, Q3WK
  3. TISLELIZUMAB [Suspect]
     Active Substance: TISLELIZUMAB
     Dosage: 200 MILLIGRAM, Q3WK
  4. TISLELIZUMAB [Suspect]
     Active Substance: TISLELIZUMAB
     Dosage: 200 MILLIGRAM, Q3WK
     Route: 041
  5. TISLELIZUMAB [Suspect]
     Active Substance: TISLELIZUMAB
     Route: 041
  6. TISLELIZUMAB [Suspect]
     Active Substance: TISLELIZUMAB
  7. TISLELIZUMAB [Suspect]
     Active Substance: TISLELIZUMAB
  8. TISLELIZUMAB [Suspect]
     Active Substance: TISLELIZUMAB
     Route: 041
  9. EPIRUBICIN HYDROCHLORIDE [Suspect]
     Active Substance: EPIRUBICIN HYDROCHLORIDE
     Indication: Soft tissue sarcoma
     Dosage: 10 MILLIGRAM, Q3WK
     Route: 041
  10. EPIRUBICIN HYDROCHLORIDE [Suspect]
     Active Substance: EPIRUBICIN HYDROCHLORIDE
     Dosage: 10 MILLIGRAM, Q3WK
  11. PACLITAXEL [Suspect]
     Active Substance: PACLITAXEL
     Indication: Soft tissue sarcoma
     Dosage: 0.25 GRAM, Q3WK
     Route: 041
  12. PACLITAXEL [Suspect]
     Active Substance: PACLITAXEL
     Dosage: 0.25 GRAM, Q3WK

REACTIONS (7)
  - Myelosuppression [Recovering/Resolving]
  - Pain of skin [Unknown]
  - Malignant neoplasm progression [Unknown]
  - Productive cough [Recovering/Resolving]
  - Pyrexia [Unknown]
  - Decreased appetite [Unknown]
  - Asthenia [Unknown]
